FAERS Safety Report 13178950 (Version 2)
Quarter: 2018Q1

REPORT INFORMATION
  Report Type: Spontaneous
  Country: US (occurrence: US)
  Receive Date: 20170202
  Receipt Date: 20180110
  Transmission Date: 20180508
  Serious: Yes (Other)
  Sender: FDA-Public Use
  Company Number: US-PFIZER INC-2017041300

PATIENT
  Age: 75 Year
  Sex: Female

DRUGS (3)
  1. HYDROMORPHONE HYDROCHLORIDE. [Suspect]
     Active Substance: HYDROMORPHONE HYDROCHLORIDE
     Dosage: UNK
  2. BRILINTA [Suspect]
     Active Substance: TICAGRELOR
     Dosage: UNK
  3. COREG [Suspect]
     Active Substance: CARVEDILOL
     Dosage: UNK

REACTIONS (4)
  - Drug hypersensitivity [Unknown]
  - Hypotension [Unknown]
  - Dyspnoea [Unknown]
  - Bradycardia [Unknown]
